FAERS Safety Report 8548188-5 (Version None)
Quarter: 2012Q3

REPORT INFORMATION
  Report Type: 
  Country: None (occurrence: None)
  Receive Date: 20120730
  Receipt Date: 20120720
  Transmission Date: 20120928
  Serious: Yes (Hospitalization, Other)
  Sender: FDA-Public Use
  Company Number: US-BIOGENIDEC-2012BI026548

PATIENT
  Age: 54 Year
  Sex: Female

DRUGS (2)
  1. AVONEX [Suspect]
     Indication: MULTIPLE SCLEROSIS
     Route: 030
     Dates: start: 20100825, end: 20110920
  2. AVONEX [Suspect]
     Route: 030
     Dates: start: 20031011, end: 20081011

REACTIONS (2)
  - PNEUMONIA [None]
  - MALIGNANT MELANOMA [None]
